FAERS Safety Report 15627150 (Version 3)
Quarter: 2022Q3

REPORT INFORMATION
  Report Type: Spontaneous
  Country: FR (occurrence: FR)
  Receive Date: 20181116
  Receipt Date: 20220713
  Transmission Date: 20221027
  Serious: Yes (Life-Threatening, Hospitalization, Other)
  Sender: FDA-Public Use
  Company Number: FR-TEVA-2018-FR-972068

PATIENT

DRUGS (6)
  1. PROPRANOLOL [Suspect]
     Active Substance: PROPRANOLOL HYDROCHLORIDE
     Indication: Product used for unknown indication
     Dosage: 1.2 G, SINGLE
     Route: 048
  2. RIVAROXABAN [Interacting]
     Active Substance: RIVAROXABAN
     Indication: Atrial fibrillation
     Dosage: 280 MG, SINGLE
     Route: 048
  3. RIVAROXABAN [Interacting]
     Active Substance: RIVAROXABAN
     Indication: Intentional overdose
  4. RIVAROXABAN [Interacting]
     Active Substance: RIVAROXABAN
     Indication: Anticoagulant therapy
  5. RIVAROXABAN [Interacting]
     Active Substance: RIVAROXABAN
     Indication: Suicide attempt
  6. AMIODARONE [Suspect]
     Active Substance: AMIODARONE
     Indication: Product used for unknown indication
     Dosage: 6 G, SINGLE
     Route: 048

REACTIONS (13)
  - Hypovolaemic shock [Unknown]
  - Drug level increased [Recovered/Resolved]
  - Toxicity to various agents [Unknown]
  - Drug interaction [Unknown]
  - Bradycardia [Unknown]
  - Hypotension [Unknown]
  - Poisoning deliberate [Unknown]
  - Intentional overdose [Unknown]
  - Intentional self-injury [Unknown]
  - Suicide attempt [Unknown]
  - Intentional product misuse [Unknown]
  - Product use issue [Unknown]
  - Off label use [Unknown]
